FAERS Safety Report 8255382-X (Version None)
Quarter: 2012Q1

REPORT INFORMATION
  Report Type: 
  Country: None (occurrence: None)
  Receive Date: 20120330
  Receipt Date: 20120319
  Transmission Date: 20120608
  Serious: Yes (Hospitalization, Other)
  Sender: FDA-Public Use
  Company Number: 2012MA003632

PATIENT
  Age: 51 Year
  Sex: Female
  Weight: 67 kg

DRUGS (13)
  1. ACYCLOVIR [Suspect]
     Indication: HERPES ZOSTER
     Dosage: 800 MG; IV
     Route: 042
  2. LAMIVUDINE [Concomitant]
  3. ACYCLOVIR [Suspect]
     Indication: HERPES ZOSTER
     Dosage: 800 MG; IV
     Route: 042
  4. VALACYCLOVIR [Concomitant]
  5. ATORVASTATIN [Concomitant]
  6. ACYCLOVIR [Suspect]
     Indication: HERPES ZOSTER
     Dosage: 800; IV
     Route: 042
  7. DIDANOSINE [Concomitant]
  8. TRIMETHOPRIM + SULFAMETHOXAZOLE [Concomitant]
  9. TRIMETHOPRIM + SULFAMETHOXAZOLE [Concomitant]
  10. ATAZANAVIR [Concomitant]
  11. HYDROCHLORIDE TABLETS [Concomitant]
  12. AMLODIPINE [Concomitant]
  13. ZIDOVUDINE [Concomitant]

REACTIONS (14)
  - CEREBRAL ATROPHY [None]
  - ELECTROLYTE IMBALANCE [None]
  - BLOOD CREATININE INCREASED [None]
  - BLOOD POTASSIUM INCREASED [None]
  - RESPIRATORY DISTRESS [None]
  - ANGIOEDEMA [None]
  - MENTAL STATUS CHANGES [None]
  - BLOOD CHLORIDE DECREASED [None]
  - ANAEMIA [None]
  - BLOOD UREA INCREASED [None]
  - UNRESPONSIVE TO STIMULI [None]
  - CONFUSIONAL STATE [None]
  - AGITATION [None]
  - BLOOD SODIUM DECREASED [None]
